FAERS Safety Report 7584057 (Version 11)
Quarter: 2012Q4

REPORT INFORMATION
  Report Type: 
  Country: US (occurrence: US)
  Receive Date: 20100914
  Receipt Date: 20121030
  Transmission Date: 20130627
  Serious: Yes (Hospitalization, Other)
  Sender: FDA-Public Use
  Company Number: PHHO2010US13813

PATIENT
  Age: 75 Year
  Sex: Male
  Weight: 79.82 kg

DRUGS (18)
  1. TASIGNA [Suspect]
     Indication: CHRONIC MYELOID LEUKAEMIA
     Dosage: 200 mg, QD
     Route: 048
     Dates: start: 20080407, end: 20100901
  2. TASIGNA [Suspect]
     Dosage: 400 mg, QD
     Route: 048
     Dates: start: 20100902, end: 20101112
  3. TASIGNA [Suspect]
     Dosage: 400 mg, QD
     Route: 048
     Dates: start: 20101113, end: 20101117
  4. TASIGNA [Suspect]
     Dosage: 400 mg, QD
     Route: 048
     Dates: start: 20101118, end: 20110902
  5. TASIGNA [Suspect]
     Dosage: 400 mg, QD
     Route: 048
     Dates: start: 20110912, end: 20120402
  6. TASIGNA [Suspect]
     Dosage: 400 mg, QD
     Route: 048
     Dates: start: 20120404, end: 20120511
  7. TASIGNA [Suspect]
     Dosage: 400 mg, QD
     Route: 048
     Dates: start: 20120515
  8. TASIGNA [Suspect]
     Dosage: 200 mg, QD
     Route: 048
     Dates: end: 20121015
  9. TASIGNA [Suspect]
     Dosage: 200 mg, QD
     Route: 048
     Dates: start: 20121018
  10. METOPROLOL TARTRATE [Concomitant]
     Indication: CHEST PAIN
     Dosage: 100 mg, QD
     Route: 048
     Dates: start: 20100514
  11. METOPROLOL TARTRATE [Concomitant]
     Indication: CORONARY ARTERY DISEASE
  12. ASPIRIN [Concomitant]
     Indication: CORONARY ARTERY DISEASE
     Dosage: UNK
     Dates: start: 20100901
  13. PLAVIX [Concomitant]
     Indication: PROPHYLAXIS
     Dosage: UNK
     Dates: start: 20100905
  14. TOPROL XL [Concomitant]
     Indication: HYPERTENSION
     Dosage: 100 mg, QD
     Route: 048
     Dates: start: 20100514
  15. PRAVASTATIN [Concomitant]
     Indication: HYPERLIPIDAEMIA
     Dosage: 80 mg, QD
     Route: 048
     Dates: start: 20100917
  16. LISINOPRIL [Concomitant]
     Indication: HYPERTENSION
     Dosage: 10 mg, QD
     Dates: start: 20100908, end: 20121015
  17. LISINOPRIL [Concomitant]
     Dosage: 20 mg, QD
  18. NITROGLYCERIN [Concomitant]
     Indication: ANGINA PECTORIS
     Dosage: UNK

REACTIONS (5)
  - Acute myocardial infarction [Recovered/Resolved]
  - Chest pain [Recovered/Resolved]
  - Coronary artery disease [Recovered/Resolved]
  - Abdominal pain upper [Recovered/Resolved]
  - Concomitant disease progression [Unknown]
